FAERS Safety Report 23549355 (Version 2)
Quarter: 2024Q1

REPORT INFORMATION
  Report Type: Report from Study
  Country: US (occurrence: US)
  Receive Date: 20240221
  Receipt Date: 20240308
  Transmission Date: 20240410
  Serious: No
  Sender: FDA-Public Use
  Company Number: US-UCBSA-2024008109

PATIENT
  Age: 73 Year
  Sex: Male

DRUGS (1)
  1. LACOSAMIDE [Suspect]
     Active Substance: LACOSAMIDE
     Indication: Seizure
     Dosage: 200 MILLIGRAM, 2X/DAY (BID) (1 TABLET BID)

REACTIONS (2)
  - Fall [Not Recovered/Not Resolved]
  - Shoulder fracture [Recovering/Resolving]

NARRATIVE: CASE EVENT DATE: 20240201
